FAERS Safety Report 4906107-4 (Version None)
Quarter: 2006Q1

REPORT INFORMATION
  Report Type: 
  Country: None (occurrence: None)
  Receive Date: 20060207
  Receipt Date: 20060207
  Transmission Date: 20060701
  Serious: Yes (Hospitalization)
  Sender: FDA-Public Use
  Company Number: None

PATIENT
  Age: 80 Year
  Sex: Female
  Weight: 57.6068 kg

DRUGS (1)
  1. ARSENIC TRIOXIDE 10MG/10ML CELL THERAPEUTICS [Suspect]
     Indication: MYELODYSPLASTIC SYNDROME
     Dosage: 13.2 MG TWICE WEEKLY IV
     Route: 042
     Dates: start: 20050926, end: 20060127

REACTIONS (3)
  - ABDOMINAL DISTENSION [None]
  - ABDOMINAL PAIN [None]
  - CREPITATIONS [None]
